FAERS Safety Report 21272873 (Version 1)
Quarter: 2022Q3

REPORT INFORMATION
  Report Type: Spontaneous
  Country: US (occurrence: None)
  Receive Date: 20220831
  Receipt Date: 20220831
  Transmission Date: 20221027
  Serious: Yes (Other)
  Sender: FDA-Public Use
  Company Number: US-ROCHE-3169087

PATIENT
  Sex: Female

DRUGS (8)
  1. OCREVUS [Suspect]
     Active Substance: OCRELIZUMAB
     Indication: Multiple sclerosis
     Dosage: 300MG/10ML
     Route: 042
     Dates: start: 20180309
  2. ALEVE [Concomitant]
     Active Substance: NAPROXEN SODIUM
  3. AMPYRA [Concomitant]
     Active Substance: DALFAMPRIDINE
  4. IBUPROFEN [Concomitant]
     Active Substance: IBUPROFEN
  5. LOVASTATIN [Concomitant]
     Active Substance: LOVASTATIN
  6. MULTI-VITAMIN RAW PROTEIN POWDER MEAL REPLACEMENT [Concomitant]
  7. TYLENOL [Concomitant]
     Active Substance: ACETAMINOPHEN
  8. VITAMIN D [Concomitant]
     Active Substance: VITAMIN D NOS

REACTIONS (1)
  - Breast cancer [Unknown]
